FAERS Safety Report 7409332-6 (Version None)
Quarter: 2011Q1

REPORT INFORMATION
  Report Type: 
  Country: None (occurrence: None)
  Receive Date: 20110301
  Receipt Date: 20101019
  Transmission Date: 20110831
  Serious: Yes (Other)
  Sender: FDA-Public Use
  Company Number: RB-16946-2010

PATIENT
  Age: 36 Year
  Sex: Male

DRUGS (4)
  1. METFORMIN [Concomitant]
  2. SUBOXONE [Suspect]
     Indication: DRUG DEPENDENCE
     Dosage: (4 MG BID SUBLINGUAL)
     Route: 060
     Dates: start: 20101011, end: 20101001
  3. WELLBUTRIN [Concomitant]
  4. PRAVASTATIN [Concomitant]

REACTIONS (4)
  - RESPIRATORY DEPRESSION [None]
  - HYPERHIDROSIS [None]
  - BLOOD POTASSIUM DECREASED [None]
  - INTENTIONAL DRUG MISUSE [None]
